FAERS Safety Report 8339532-2 (Version None)
Quarter: 2012Q2

REPORT INFORMATION
  Report Type: 
  Country: None (occurrence: None)
  Receive Date: 20120507
  Receipt Date: 20120503
  Transmission Date: 20120825
  Serious: No
  Sender: FDA-Public Use
  Company Number: US-B.I. PHARMACEUTICALS,INC./RIDGEFIELD-2012-BP-10131BP

PATIENT
  Age: 81 Year
  Sex: Female

DRUGS (1)
  1. PRADAXA [Suspect]

REACTIONS (6)
  - GASTROOESOPHAGEAL REFLUX DISEASE [None]
  - TREMOR [None]
  - MUSCLE SPASMS [None]
  - SENSATION OF FOREIGN BODY [None]
  - ABDOMINAL DISTENSION [None]
  - ASTHENIA [None]
